FAERS Safety Report 21126222 (Version 1)
Quarter: 2022Q3

REPORT INFORMATION
  Report Type: Spontaneous
  Country: US (occurrence: None)
  Receive Date: 20220724
  Receipt Date: 20220724
  Transmission Date: 20221027
  Serious: Yes (Hospitalization)
  Sender: FDA-Public Use
  Company Number: None

PATIENT
  Age: 46 Year
  Sex: Female
  Weight: 51.75 kg

DRUGS (1)
  1. VERZENIO [Suspect]
     Active Substance: ABEMACICLIB
     Indication: Breast cancer
     Dosage: OTHER QUANTITY : 1 TABLET(S);?
     Route: 048

REACTIONS (5)
  - Chest pain [None]
  - Myocardial injury [None]
  - Pneumonitis [None]
  - Thrombosis [None]
  - Pneumothorax [None]

NARRATIVE: CASE EVENT DATE: 20220718
